FAERS Safety Report 5067415-2 (Version None)
Quarter: 2006Q3

REPORT INFORMATION
  Report Type: 
  Country: None (occurrence: None)
  Receive Date: 20060726
  Receipt Date: 20060714
  Transmission Date: 20061208
  Serious: Yes (Death)
  Sender: FDA-Public Use
  Company Number: 200610858BVD

PATIENT
  Age: 58 Year
  Sex: Male
  Weight: 99 kg

DRUGS (7)
  1. VARDENAFIL [Suspect]
     Indication: ERECTILE DYSFUNCTION
     Dosage: 20 MG, TOTAL DAILY, ORAL
     Route: 048
     Dates: start: 20060702
  2. AMANTADINE HCL [Concomitant]
  3. MADOPAR [Concomitant]
  4. CABASERIL [Concomitant]
  5. STALEVO 100 [Concomitant]
  6. METFORMIN HCL [Concomitant]
  7. COAPROVEL [Concomitant]

REACTIONS (1)
  - VENTRICULAR FIBRILLATION [None]
